FAERS Safety Report 7585435-0 (Version None)
Quarter: 2011Q3

REPORT INFORMATION
  Report Type: 
  Country: None (occurrence: None)
  Receive Date: 20110701
  Receipt Date: 20110621
  Transmission Date: 20111222
  Serious: Yes (Hospitalization)
  Sender: FDA-Public Use
  Company Number: US-BAYER-2011-002833

PATIENT
  Age: 38 Year
  Sex: Female
  Weight: 60 kg

DRUGS (5)
  1. ACCUTANE [Concomitant]
     Indication: ACNE
     Dosage: UNK
     Dates: start: 20061001, end: 20070401
  2. COUMADIN [Concomitant]
  3. YASMIN [Suspect]
     Indication: MENSTRUAL DISORDER
     Dosage: UNK
     Dates: start: 20051001, end: 20051101
  4. CLARAVIS [Concomitant]
     Indication: ACNE
     Dosage: UNK
     Dates: start: 20061001, end: 20070401
  5. POTASSIUM [Concomitant]
     Dosage: UNK
     Dates: start: 20051125, end: 20051201

REACTIONS (3)
  - PAIN [None]
  - INJURY [None]
  - PULMONARY EMBOLISM [None]
